FAERS Safety Report 10017561 (Version 2)
Quarter: 2014Q2

REPORT INFORMATION
  Report Type: Spontaneous
  Country: FR (occurrence: FR)
  Receive Date: 20140318
  Receipt Date: 20140424
  Transmission Date: 20141212
  Serious: No
  Sender: FDA-Public Use
  Company Number: FR-TEVA-467566ISR

PATIENT
  Age: 33 Year
  Sex: Female

DRUGS (1)
  1. COPAXONE [Suspect]
     Dosage: MANUAL INJECTION

REACTIONS (5)
  - Malaise [Recovered/Resolved]
  - Swelling [Unknown]
  - Erythema [Unknown]
  - Vomiting [Unknown]
  - Diarrhoea [Recovered/Resolved]
